FAERS Safety Report 6596430-2 (Version None)
Quarter: 2010Q1

REPORT INFORMATION
  Report Type: 
  Country: None (occurrence: None)
  Receive Date: 20100222
  Receipt Date: 20100222
  Transmission Date: 20100710
  Serious: Yes (Life-Threatening, Hospitalization)
  Sender: FDA-Public Use
  Company Number: None

PATIENT
  Age: 71 Year
  Sex: Female
  Weight: 90.9 kg

DRUGS (1)
  1. LISINOPRIL [Suspect]

REACTIONS (3)
  - ANGIOEDEMA [None]
  - RASH [None]
  - TONGUE DISORDER [None]
